FAERS Safety Report 19717215 (Version 2)
Quarter: 2023Q1

REPORT INFORMATION
  Report Type: Spontaneous
  Country: CA (occurrence: None)
  Receive Date: 20210818
  Receipt Date: 20230126
  Transmission Date: 20230418
  Serious: Yes (Hospitalization, Other)
  Sender: FDA-Public Use
  Company Number: 2021A677635

PATIENT
  Age: 26 Year
  Sex: Female
  Weight: 80 kg

DRUGS (24)
  1. NEXIUM [Suspect]
     Active Substance: ESOMEPRAZOLE MAGNESIUM
     Indication: Product used for unknown indication
     Dosage: 1 EVERY 1 DAYS
     Route: 048
  2. OMEPRAZOLE [Suspect]
     Active Substance: OMEPRAZOLE
     Indication: Product used for unknown indication
     Route: 048
  3. ATENOLOL [Suspect]
     Active Substance: ATENOLOL
     Indication: Product used for unknown indication
     Dosage: UNKNOWN
     Route: 048
  4. ACETAMINOPHEN [Suspect]
     Active Substance: ACETAMINOPHEN
     Indication: Headache
     Route: 048
  5. AZATHIOPRINE [Suspect]
     Active Substance: AZATHIOPRINE
     Indication: Product used for unknown indication
     Dosage: 100 MILLIGRAM 1 EVERY 1 DAY
     Route: 048
  6. AZATHIOPRINE [Suspect]
     Active Substance: AZATHIOPRINE
     Indication: Product used for unknown indication
     Dosage: 75 MILLIGRAM 1 EVERY 1 DAY
     Route: 048
  7. BETAMETHASONE VALERATE [Suspect]
     Active Substance: BETAMETHASONE VALERATE
     Indication: Product used for unknown indication
     Dosage: UNKNOWN
     Route: 061
  8. REMICADE [Suspect]
     Active Substance: INFLIXIMAB
     Indication: Crohn^s disease
     Dosage: 300.0 MILLIGRAM,1 EVERY 6 WEEKS
     Route: 042
  9. REMICADE [Suspect]
     Active Substance: INFLIXIMAB
     Indication: Chronic disease
     Dosage: 300.0 MILLIGRAM,1 EVERY 6 WEEKS
     Route: 042
  10. REMICADE [Suspect]
     Active Substance: INFLIXIMAB
     Indication: Product used for unknown indication
     Dosage: 300.0 MILLIGRAM,1 EVERY 6 WEEKS
     Route: 042
  11. ALBUTEROL [Suspect]
     Active Substance: ALBUTEROL
     Indication: Product used for unknown indication
     Route: 065
  12. TORADOL [Suspect]
     Active Substance: KETOROLAC TROMETHAMINE
     Indication: Pain
     Route: 048
  13. ZOPICLONE [Suspect]
     Active Substance: ZOPICLONE
     Indication: Product used for unknown indication
     Dosage: 10.0MG UNKNOWN
     Route: 048
  14. PREDNISONE [Suspect]
     Active Substance: PREDNISONE
     Indication: Haemoglobin decreased
     Route: 048
  15. OXAZEPAM [Suspect]
     Active Substance: OXAZEPAM
     Indication: Product used for unknown indication
     Dosage: 30.0MG UNKNOWN
     Route: 048
  16. FLOVENT [Suspect]
     Active Substance: FLUTICASONE PROPIONATE
     Indication: Product used for unknown indication
     Route: 048
  17. FLOVENT [Suspect]
     Active Substance: FLUTICASONE PROPIONATE
     Indication: Product used for unknown indication
     Route: 048
  18. FLOVENT [Suspect]
     Active Substance: FLUTICASONE PROPIONATE
     Indication: Product used for unknown indication
     Route: 048
  19. DIMENHYDRINATE [Suspect]
     Active Substance: DIMENHYDRINATE
     Indication: Premedication
     Dosage: 50.0 MILLIGRAM
     Route: 048
  20. DIMENHYDRINATE [Suspect]
     Active Substance: DIMENHYDRINATE
     Indication: Premedication
     Dosage: 50.0 MILLIGRAM
     Route: 042
  21. DICLECTIN [Suspect]
     Active Substance: DOXYLAMINE SUCCINATE\PYRIDOXINE HYDROCHLORIDE
     Indication: Nausea
     Route: 065
  22. CELEXA [Suspect]
     Active Substance: CITALOPRAM HYDROBROMIDE
     Indication: Depression
     Route: 065
  23. DIPHENHYDRAMINE [Suspect]
     Active Substance: DIPHENHYDRAMINE
     Indication: Premedication
     Route: 048
  24. ESOMEPRAZOLE MAGNESIUM [Suspect]
     Active Substance: ESOMEPRAZOLE MAGNESIUM
     Indication: Product used for unknown indication
     Route: 048

REACTIONS (9)
  - Concussion [Recovered/Resolved]
  - Dehydration [Recovered/Resolved]
  - Haemoglobin decreased [Recovered/Resolved]
  - Maternal exposure during pregnancy [Recovered/Resolved]
  - Rectal haemorrhage [Recovered/Resolved]
  - Abdominal pain [Recovered/Resolved]
  - Depression [Recovered/Resolved]
  - Diarrhoea [Recovered/Resolved]
  - Nausea [Recovered/Resolved]
